FAERS Safety Report 7977897-1 (Version None)
Quarter: 2011Q4

REPORT INFORMATION
  Report Type: 
  Country: None (occurrence: None)
  Receive Date: 20111214
  Receipt Date: 20111208
  Transmission Date: 20120403
  Serious: Yes (Hospitalization)
  Sender: FDA-Public Use
  Company Number: US-AMGEN-USASP2011064256

PATIENT
  Age: 62 Year
  Sex: Female
  Weight: 47.166 kg

DRUGS (2)
  1. ENBREL [Suspect]
     Indication: RHEUMATOID ARTHRITIS
     Dosage: 50 MG, QWK
     Route: 058
     Dates: start: 20090201, end: 20110204
  2. ARAVA [Concomitant]
     Dosage: UNK UNK, QD
     Dates: start: 20110101

REACTIONS (1)
  - RENAL CANCER [None]
